FAERS Safety Report 5704834-2 (Version None)
Quarter: 2008Q2

REPORT INFORMATION
  Report Type: 
  Country: None (occurrence: None)
  Receive Date: 20080414
  Receipt Date: 20080403
  Transmission Date: 20081010
  Serious: Yes (Hospitalization)
  Sender: FDA-Public Use
  Company Number: US-ELI_LILLY_AND_COMPANY-US200804000985

PATIENT
  Sex: Female

DRUGS (3)
  1. FORTEO [Suspect]
     Indication: OSTEOPOROSIS
  2. COUMADIN [Concomitant]
  3. BETA BLOCKING AGENTS [Concomitant]

REACTIONS (6)
  - ANXIETY [None]
  - MOBILITY DECREASED [None]
  - NERVOUSNESS [None]
  - SPINAL FRACTURE [None]
  - STENT PLACEMENT [None]
  - THROMBOSIS [None]
